FAERS Safety Report 6809578-1 (Version None)
Quarter: 2010Q2

REPORT INFORMATION
  Report Type: 
  Country: None (occurrence: None)
  Receive Date: 20100625
  Receipt Date: 20100617
  Transmission Date: 20101027
  Serious: Yes (Hospitalization, Other)
  Sender: FDA-Public Use
  Company Number: 2007-02309

PATIENT
  Age: 60 Year
  Sex: Female
  Weight: 49 kg

DRUGS (18)
  1. VELCADE [Suspect]
     Indication: MULTIPLE MYELOMA
     Dosage: 1.60 MG, INTRAVENOUS; 1.4 MG, INTRAVENOUS; 1.4 MG, INTRAVENOUS; 1.8 MG, INTRAVENOUS
     Route: 042
     Dates: start: 20070316, end: 20070326
  2. VELCADE [Suspect]
     Indication: MULTIPLE MYELOMA
     Dosage: 1.60 MG, INTRAVENOUS; 1.4 MG, INTRAVENOUS; 1.4 MG, INTRAVENOUS; 1.8 MG, INTRAVENOUS
     Route: 042
     Dates: start: 20070410, end: 20070515
  3. VELCADE [Suspect]
     Indication: MULTIPLE MYELOMA
     Dosage: 1.60 MG, INTRAVENOUS; 1.4 MG, INTRAVENOUS; 1.4 MG, INTRAVENOUS; 1.8 MG, INTRAVENOUS
     Route: 042
     Dates: start: 20080415, end: 20090321
  4. VELCADE [Suspect]
     Indication: MULTIPLE MYELOMA
     Dosage: 1.60 MG, INTRAVENOUS; 1.4 MG, INTRAVENOUS; 1.4 MG, INTRAVENOUS; 1.8 MG, INTRAVENOUS
     Route: 042
     Dates: start: 20090806, end: 20091001
  5. ITRACONAZOLE [Concomitant]
  6. RISEDRONATE SODIUM [Concomitant]
  7. CALCIUM LACTATE (CALCIUM LACTATE) [Concomitant]
  8. MAGNESIUM OXIDE (MAGNESIUM OXIDE) [Concomitant]
  9. LANSOPRAZOLE [Concomitant]
  10. LOPERAMIDE HCL [Concomitant]
  11. LOXONIN (LOXOPROFEN SODIUM) [Concomitant]
  12. LENDORM [Concomitant]
  13. VALTREX [Concomitant]
  14. AMITRIPTYLINE HCL [Concomitant]
  15. TALION (BEPOTASTINE BESILATE) [Concomitant]
  16. METHYCOBAL /00324901/ (MECOBALAMIN) [Concomitant]
  17. MAGMITT (MAGNESIUM OXIDE) [Concomitant]
  18. FOSAMAC (ALENDRONATE SODIUM) [Concomitant]

REACTIONS (5)
  - ERYTHEMA MULTIFORME [None]
  - HERPES SIMPLEX [None]
  - NEUTROPHIL COUNT DECREASED [None]
  - PAIN [None]
  - PLATELET COUNT DECREASED [None]
